FAERS Safety Report 6102702-8 (Version None)
Quarter: 2009Q1

REPORT INFORMATION
  Report Type: 
  Country: None (occurrence: None)
  Receive Date: 20090304
  Receipt Date: 20071025
  Transmission Date: 20090719
  Serious: Yes (Other)
  Sender: FDA-Public Use
  Company Number: B0487065A

PATIENT
  Age: 79 Year
  Sex: Male

DRUGS (7)
  1. REQUIP [Suspect]
     Indication: PARKINSON'S DISEASE
     Dosage: 1MG SEE DOSAGE TEXT
     Route: 048
     Dates: start: 20070710, end: 20070830
  2. ARTANE [Concomitant]
     Route: 048
  3. PERMAX [Concomitant]
     Route: 048
  4. UNKNOWN DRUG [Concomitant]
     Route: 048
  5. DOPS (JAPAN) [Concomitant]
     Route: 048
  6. BERAPROST SODIUM [Concomitant]
     Route: 048
  7. MYSLEE [Concomitant]
     Route: 048

REACTIONS (2)
  - SOMNOLENCE [None]
  - SUDDEN ONSET OF SLEEP [None]
